FAERS Safety Report 8187194-X (Version None)
Quarter: 2012Q1

REPORT INFORMATION
  Report Type: 
  Country: None (occurrence: None)
  Receive Date: 20120306
  Receipt Date: 20120227
  Transmission Date: 20120608
  Serious: Yes (Other)
  Sender: FDA-Public Use
  Company Number: CO-PFIZER INC-2012054255

PATIENT
  Sex: Male

DRUGS (1)
  1. XYNTHA [Suspect]
     Indication: FACTOR VIII DEFICIENCY
     Dosage: 1500 IU, ALTERNATE DAY
     Dates: start: 20120227

REACTIONS (5)
  - DYSPNOEA [None]
  - RASH [None]
  - HEADACHE [None]
  - VISION BLURRED [None]
  - PRURITUS [None]
